FAERS Safety Report 22330716 (Version 1)
Quarter: 2023Q2

REPORT INFORMATION
  Report Type: Spontaneous
  Country: US (occurrence: None)
  Receive Date: 20230515
  Receipt Date: 20230515
  Transmission Date: 20230722
  Serious: No
  Sender: FDA-Public Use
  Company Number: None

PATIENT
  Age: 70 Year
  Sex: Female
  Weight: 62.1 kg

DRUGS (1)
  1. PAXLOVID [Suspect]
     Active Substance: NIRMATRELVIR\RITONAVIR
     Indication: COVID-19 treatment
     Dates: start: 20230510, end: 20230512

REACTIONS (4)
  - Nausea [None]
  - Abdominal pain [None]
  - Weight decreased [None]
  - Sleep disorder [None]

NARRATIVE: CASE EVENT DATE: 20230511
